FAERS Safety Report 7568240-0 (Version None)
Quarter: 2011Q2

REPORT INFORMATION
  Report Type: 
  Country: None (occurrence: None)
  Receive Date: 20110623
  Receipt Date: 20110617
  Transmission Date: 20111010
  Serious: Yes (Death, Hospitalization)
  Sender: FDA-Public Use
  Company Number: KR-CELGENEUS-286-50794-11062268

PATIENT
  Sex: Male
  Weight: 60 kg

DRUGS (2)
  1. VIDAZA [Suspect]
     Dosage: 120 MILLIGRAM
     Route: 050
     Dates: start: 20110321, end: 20110327
  2. VIDAZA [Suspect]
     Dosage: 120 MILLIGRAM
     Route: 050
     Dates: start: 20101230

REACTIONS (2)
  - PNEUMONIA [None]
  - NEUTROPENIA [None]
